FAERS Safety Report 5700936-5 (Version None)
Quarter: 2008Q2

REPORT INFORMATION
  Report Type: 
  Country: None (occurrence: None)
  Receive Date: 20080410
  Receipt Date: 20080401
  Transmission Date: 20081010
  Serious: Yes (Hospitalization)
  Sender: FDA-Public Use
  Company Number: B0514981A

PATIENT
  Age: 45 Year
  Sex: Female

DRUGS (2)
  1. LAPATINIB [Suspect]
     Route: 048
     Dates: start: 20080129
  2. CAPECITABINE [Suspect]
     Route: 048

REACTIONS (2)
  - CONVULSION [None]
  - POSTOPERATIVE WOUND INFECTION [None]
